FAERS Safety Report 11833880 (Version 1)
Quarter: 2015Q4

REPORT INFORMATION
  Report Type: Report from Study
  Country: RU (occurrence: RU)
  Receive Date: 20151214
  Receipt Date: 20151214
  Transmission Date: 20160305
  Serious: Yes (Hospitalization)
  Sender: FDA-Public Use
  Company Number: RU-SA-CAMP-1001797

PATIENT
  Age: 21 Year
  Sex: Female
  Weight: 61.2 kg

DRUGS (7)
  1. ALEMTUZUMAB [Suspect]
     Active Substance: ALEMTUZUMAB
     Indication: MULTIPLE SCLEROSIS
     Dosage: 12 MG, QDX3
     Route: 042
     Dates: start: 20091117, end: 20091119
  2. NEUROMULTIVIT [Concomitant]
     Indication: BASEDOW^S DISEASE
     Dosage: 1 TABLET, BID DOSE:1 OTHER
     Route: 048
     Dates: start: 20110514
  3. METHYLPREDNISOLONE. [Concomitant]
     Active Substance: METHYLPREDNISOLONE
     Indication: MULTIPLE SCLEROSIS
     Dosage: 1000 MG, QDX3
     Route: 042
     Dates: start: 20091117, end: 20091119
  4. METHYLPREDNISOLONE. [Concomitant]
     Active Substance: METHYLPREDNISOLONE
     Indication: MULTIPLE SCLEROSIS
     Dosage: 1000 MG, QDX3
     Route: 042
     Dates: start: 20081117, end: 20081119
  5. METOPROLOL [Concomitant]
     Active Substance: METOPROLOL
     Indication: BASEDOW^S DISEASE
     Dosage: 50 MG, QD
     Route: 048
     Dates: start: 20110514
  6. ALEMTUZUMAB [Suspect]
     Active Substance: ALEMTUZUMAB
     Indication: MULTIPLE SCLEROSIS
     Dosage: 12 MG, QDX5
     Route: 042
     Dates: start: 20081117, end: 20081121
  7. THIAMAZOLE [Concomitant]
     Active Substance: METHIMAZOLE
     Indication: BASEDOW^S DISEASE
     Dosage: 5 MG, QD
     Route: 048
     Dates: start: 20110605

REACTIONS (2)
  - Herpes zoster [Recovered/Resolved]
  - Basedow^s disease [Not Recovered/Not Resolved]

NARRATIVE: CASE EVENT DATE: 20110210
